FAERS Safety Report 5608917-7 (Version None)
Quarter: 2008Q1

REPORT INFORMATION
  Report Type: 
  Country: None (occurrence: None)
  Receive Date: 20080129
  Receipt Date: 20080129
  Transmission Date: 20080703
  Serious: No
  Sender: FDA-Public Use
  Company Number: None

PATIENT
  Age: 26 Year

DRUGS (1)
  1. NAPROSYN [Suspect]
     Dosage: 500 MG 1 TWICE A DAY

REACTIONS (2)
  - IDIOSYNCRATIC DRUG REACTION [None]
  - SOMNOLENCE [None]
